FAERS Safety Report 12325103 (Version 6)
Quarter: 2016Q2

REPORT INFORMATION
  Report Type: Spontaneous
  Country: UY (occurrence: UY)
  Receive Date: 20160502
  Receipt Date: 20160512
  Transmission Date: 20160815
  Serious: Yes (Death, Hospitalization)
  Sender: FDA-Public Use
  Company Number: PHHY2016UY058028

PATIENT
  Age: 3 Year
  Sex: Female

DRUGS (4)
  1. LORAZEPAM. [Concomitant]
     Active Substance: LORAZEPAM
     Indication: EPILEPSY
     Dosage: UNK
     Route: 065
  2. CARBAMAZEPINE. [Suspect]
     Active Substance: CARBAMAZEPINE
     Indication: EPILEPSY
     Dosage: UNK
     Route: 065
     Dates: start: 20090506
  3. VALPROIC ACID SANDOZ [Suspect]
     Active Substance: VALPROIC ACID
     Indication: EPILEPSY
     Dosage: UNK
     Route: 065
  4. PHENOBARBITAL. [Suspect]
     Active Substance: PHENOBARBITAL
     Indication: STATUS EPILEPTICUS
     Dosage: UNK
     Route: 065

REACTIONS (18)
  - Drug reaction with eosinophilia and systemic symptoms [Fatal]
  - Hepatosplenomegaly [Fatal]
  - Anuria [Fatal]
  - Haemodynamic instability [Fatal]
  - Purpura [Fatal]
  - Renal impairment [Fatal]
  - Odynophagia [Fatal]
  - Pyrexia [Fatal]
  - Eyelid oedema [Fatal]
  - Vasculitis [Fatal]
  - Hepatic infiltration eosinophilic [Fatal]
  - Rash maculo-papular [Fatal]
  - Status epilepticus [Fatal]
  - Oedema peripheral [Fatal]
  - Pulmonary haemorrhage [Fatal]
  - Malaise [Fatal]
  - Myocarditis [Fatal]
  - Irritability [Fatal]

NARRATIVE: CASE EVENT DATE: 20090516
